FAERS Safety Report 7387841-6 (Version None)
Quarter: 2011Q1

REPORT INFORMATION
  Report Type: 
  Country: None (occurrence: None)
  Receive Date: 20110331
  Receipt Date: 20110324
  Transmission Date: 20110831
  Serious: Yes (Other)
  Sender: FDA-Public Use
  Company Number: SE-MERCK-1103SWE00026

PATIENT
  Age: 15 Year
  Sex: Male

DRUGS (1)
  1. SINGULAIR [Suspect]
     Indication: ASTHMA
     Route: 048

REACTIONS (5)
  - SUICIDAL IDEATION [None]
  - MOOD ALTERED [None]
  - ANXIETY [None]
  - DEPRESSION [None]
  - ABDOMINAL PAIN [None]
